FAERS Safety Report 19551936 (Version 1)
Quarter: 2021Q3

REPORT INFORMATION
  Report Type: Spontaneous
  Country: FR (occurrence: FR)
  Receive Date: 20210715
  Receipt Date: 20210715
  Transmission Date: 20211014
  Serious: Yes (Other)
  Sender: FDA-Public Use
  Company Number: FR-AUROBINDO-AUR-APL-2021-029654

PATIENT
  Age: 53 Year
  Sex: Female
  Weight: 57 kg

DRUGS (2)
  1. MORPHINE [Interacting]
     Active Substance: MORPHINE
     Indication: PAIN
     Dosage: 200 MILLIGRAM, ONCE A DAY
     Route: 042
     Dates: start: 20210430, end: 20210507
  2. GABAPENTIN. [Suspect]
     Active Substance: GABAPENTIN
     Indication: PAIN
     Dosage: 600 MILLIGRAM, ONCE A DAY
     Route: 048
     Dates: start: 20210504

REACTIONS (3)
  - Delirium [Recovered/Resolved]
  - Somnolence [Unknown]
  - Dyspnoea [Recovered/Resolved]

NARRATIVE: CASE EVENT DATE: 20210506
